FAERS Safety Report 21544963 (Version 1)
Quarter: 2022Q4

REPORT INFORMATION
  Report Type: Spontaneous
  Country: US (occurrence: None)
  Receive Date: 20221101
  Receipt Date: 20221101
  Transmission Date: 20230112
  Serious: Yes (Other)
  Sender: FDA-Public Use
  Company Number: None

PATIENT
  Sex: Female

DRUGS (1)
  1. CAPECITABINE [Suspect]
     Active Substance: CAPECITABINE
     Dosage: FREQUENCY : TWICE A DAY;?
     Route: 048

REACTIONS (11)
  - Dizziness [None]
  - Nausea [None]
  - Constipation [None]
  - Faecaloma [None]
  - Fall [None]
  - Vomiting [None]
  - Asthenia [None]
  - Neuropathy peripheral [None]
  - Fine motor skill dysfunction [None]
  - Decreased appetite [None]
  - Ageusia [None]
